FAERS Safety Report 4480650-7 (Version None)
Quarter: 2004Q4

REPORT INFORMATION
  Report Type: 
  Country: None (occurrence: None)
  Receive Date: 20041019
  Receipt Date: 20041014
  Transmission Date: 20050328
  Serious: Yes (Life-Threatening, Hospitalization)
  Sender: FDA-Public Use
  Company Number: 2004-120353-NL

PATIENT
  Age: 80 Year
  Sex: Female

DRUGS (11)
  1. MIRTAZAPINE [Suspect]
     Dosage: 30 MG
     Route: 048
     Dates: start: 20030801, end: 20040815
  2. RAMIPRIL [Concomitant]
  3. ACETYLSALICYLIC ACID [Concomitant]
  4. HYDROCHLOROTHIAZIDE [Concomitant]
  5. ISOSORBIDE DINITRATE [Concomitant]
  6. ZOPICLONE [Concomitant]
  7. MEBEVERINE HYDROCHLORIDE [Concomitant]
  8. MOLSIDOMINE [Concomitant]
  9. PIROXICAM [Concomitant]
  10. BISOPROLOL FUMARATE [Concomitant]
  11. CARBIMAZOLE [Concomitant]

REACTIONS (2)
  - HYPOKALAEMIA [None]
  - HYPONATRAEMIC SYNDROME [None]
